FAERS Safety Report 21980701 (Version 7)
Quarter: 2024Q4

REPORT INFORMATION
  Report Type: Spontaneous
  Country: US (occurrence: US)
  Receive Date: 20230211
  Receipt Date: 20241011
  Transmission Date: 20250115
  Serious: Yes (Hospitalization)
  Sender: ROCHE
  Company Number: US-ROCHE-3281688

PATIENT
  Age: 52 Year
  Sex: Male

DRUGS (6)
  1. HEMLIBRA [Suspect]
     Active Substance: EMICIZUMAB-KXWH
     Indication: Factor VIII deficiency
     Dosage: STRENGTH:150MG/ML, 104 MG/0.7 ML
     Route: 058
     Dates: start: 20221116
  2. HEMLIBRA [Suspect]
     Active Substance: EMICIZUMAB-KXWH
     Dosage: STRENGTH:105MG/0.7ML
     Route: 058
     Dates: start: 202209
  3. HEMLIBRA [Suspect]
     Active Substance: EMICIZUMAB-KXWH
     Dosage: STRENGTH:150MG/ML
     Route: 058
     Dates: start: 202209
  4. HEMLIBRA [Suspect]
     Active Substance: EMICIZUMAB-KXWH
     Dosage: STRENGTH:150MG/ML, 104 MG/0.7 ML
     Route: 058
     Dates: start: 202211
  5. HEMLIBRA [Suspect]
     Active Substance: EMICIZUMAB-KXWH
     Dosage: DOSE: 255 MG (1.7ML), STRENGTH:150MG/ML, 105 MG/0.7 ML
     Route: 058
     Dates: start: 202211
  6. HEMLIBRA [Suspect]
     Active Substance: EMICIZUMAB-KXWH
     Dosage: STRENGTH:300 MG/2 ML
     Route: 058
     Dates: start: 202211

REACTIONS (1)
  - Haemorrhage [Unknown]

NARRATIVE: CASE EVENT DATE: 20230125
